FAERS Safety Report 7209476-8 (Version None)
Quarter: 2011Q1

REPORT INFORMATION
  Report Type: 
  Country: None (occurrence: None)
  Receive Date: 20110104
  Receipt Date: 20101221
  Transmission Date: 20110831
  Serious: Yes (Hospitalization)
  Sender: FDA-Public Use
  Company Number: US-CELGENEUS-163-21880-10122500

PATIENT
  Sex: Female

DRUGS (2)
  1. VELCADE [Suspect]
     Indication: MULTIPLE MYELOMA
     Route: 065
  2. REVLIMID [Suspect]
     Indication: MULTIPLE MYELOMA
     Route: 048

REACTIONS (4)
  - RENAL FAILURE [None]
  - HEPATIC FAILURE [None]
  - HYPEREOSINOPHILIC SYNDROME [None]
  - RASH MACULO-PAPULAR [None]
